FAERS Safety Report 6585154-3 (Version None)
Quarter: 2010Q1

REPORT INFORMATION
  Report Type: 
  Country: None (occurrence: None)
  Receive Date: 20100217
  Receipt Date: 20100209
  Transmission Date: 20100710
  Serious: Yes (Other)
  Sender: FDA-Public Use
  Company Number: US-RB-002494-10

PATIENT
  Age: 64 Year
  Sex: Female

DRUGS (1)
  1. SUBOXONE [Suspect]
     Indication: DRUG USE FOR UNKNOWN INDICATION
     Dosage: DOSING DETAILS UNKNOWN
     Route: 065

REACTIONS (5)
  - MALAISE [None]
  - MENTAL IMPAIRMENT [None]
  - RIB FRACTURE [None]
  - SUICIDAL IDEATION [None]
  - VOMITING [None]
